FAERS Safety Report 4440876-5 (Version None)
Quarter: 2004Q3

REPORT INFORMATION
  Report Type: 
  Country: None (occurrence: None)
  Receive Date: 20040728
  Receipt Date: 20040225
  Transmission Date: 20050211
  Serious: No
  Sender: FDA-Public Use
  Company Number: USA040156926

PATIENT
  Age: 6 Year
  Sex: Female
  Weight: 13 kg

DRUGS (1)
  1. STRATTERA [Suspect]
     Indication: ATTENTION DEFICIT/HYPERACTIVITY DISORDER
     Dosage: 10 MG/1 DAY
     Dates: start: 20031201

REACTIONS (1)
  - PNEUMONIA [None]
